FAERS Safety Report 24180375 (Version 1)
Quarter: 2024Q3

REPORT INFORMATION
  Report Type: Spontaneous
  Country: JP (occurrence: JP)
  Receive Date: 20240806
  Receipt Date: 20240806
  Transmission Date: 20241017
  Serious: Yes (Other)
  Sender: JOHNSON AND JOHNSON
  Company Number: JP-JNJFOC-20240804606

PATIENT
  Age: 85 Year
  Sex: Female

DRUGS (10)
  1. ITRACONAZOLE [Suspect]
     Active Substance: ITRACONAZOLE
     Indication: Scleritis
     Route: 048
  2. EPINEPHRINE [Concomitant]
     Active Substance: EPINEPHRINE
     Dosage: DOSE UNKNOWN
     Route: 047
  3. LEVOFLOXACIN HEMIHYDRATE [Concomitant]
     Active Substance: LEVOFLOXACIN
     Dosage: DOSE UNKNOWN
     Route: 047
  4. FLUOROMETHOLONE [Concomitant]
     Active Substance: FLUOROMETHOLONE
     Dosage: DOSE UNKNOWN
     Route: 047
  5. FLUOROMETHOLONE [Concomitant]
     Active Substance: FLUOROMETHOLONE
     Dosage: DOSE UNKNOWN
     Route: 047
  6. MICAFUNGIN SODIUM [Concomitant]
     Active Substance: MICAFUNGIN SODIUM
     Dosage: DOSE UNKNOWN
     Route: 047
  7. MICAFUNGIN SODIUM [Concomitant]
     Active Substance: MICAFUNGIN SODIUM
     Dosage: DOSE UNKNOWN
     Route: 047
  8. VORICONAZOLE [Concomitant]
     Active Substance: VORICONAZOLE
     Dosage: DOSE UNKNOWN
     Route: 047
  9. VORICONAZOLE [Concomitant]
     Active Substance: VORICONAZOLE
     Dosage: DOSE UNKNOWN
     Route: 047
  10. TRIAMCINOLONE ACETONIDE [Concomitant]
     Active Substance: TRIAMCINOLONE ACETONIDE
     Dosage: DOSE UNKNOWN
     Route: 057

REACTIONS (1)
  - Cerebral infarction [Unknown]
